FAERS Safety Report 7763772-4 (Version None)
Quarter: 2011Q3

REPORT INFORMATION
  Report Type: 
  Country: None (occurrence: None)
  Receive Date: 20110919
  Receipt Date: 20091116
  Transmission Date: 20111222
  Serious: Yes (Death, Hospitalization, Other)
  Sender: FDA-Public Use
  Company Number: 2009SP036766

PATIENT
  Sex: Male
  Weight: 74.7 kg

DRUGS (25)
  1. GASTER D [Concomitant]
  2. MAGNESIUM OXIDE [Concomitant]
  3. BACTAR [Concomitant]
  4. PURSENNID [Concomitant]
  5. DEPAKENE [Suspect]
     Indication: PROPHYLAXIS
     Dosage: ;PO
     Route: 048
     Dates: start: 20071121, end: 20090314
  6. NAVOBAN [Concomitant]
  7. TEMODAL [Suspect]
     Indication: ANAPLASTIC ASTROCYTOMA
     Dosage: 150 MG/M2;QD;PO  ;2000 MG/M2;QD;PO
     Route: 048
     Dates: start: 20080409, end: 20080414
  8. TEMODAL [Suspect]
     Indication: ANAPLASTIC ASTROCYTOMA
     Dosage: 150 MG/M2;QD;PO  ;2000 MG/M2;QD;PO
     Route: 048
     Dates: start: 20080130, end: 20080203
  9. TEMODAL [Suspect]
     Indication: ANAPLASTIC ASTROCYTOMA
     Dosage: 150 MG/M2;QD;PO  ;2000 MG/M2;QD;PO
     Route: 048
     Dates: start: 20090121, end: 20090125
  10. TEMODAL [Suspect]
     Indication: ANAPLASTIC ASTROCYTOMA
     Dosage: 150 MG/M2;QD;PO  ;2000 MG/M2;QD;PO
     Route: 048
     Dates: start: 20091028, end: 20091129
  11. TEMODAL [Suspect]
     Indication: ANAPLASTIC ASTROCYTOMA
     Dosage: 150 MG/M2;QD;PO  ;2000 MG/M2;QD;PO
     Route: 048
     Dates: start: 20080801, end: 20080805
  12. TEMODAL [Suspect]
     Indication: ANAPLASTIC ASTROCYTOMA
     Dosage: 150 MG/M2;QD;PO  ;2000 MG/M2;QD;PO
     Route: 048
     Dates: start: 20081219, end: 20081223
  13. TEMODAL [Suspect]
     Indication: ANAPLASTIC ASTROCYTOMA
     Dosage: 150 MG/M2;QD;PO  ;2000 MG/M2;QD;PO
     Route: 048
     Dates: start: 20090814, end: 20090818
  14. TEMODAL [Suspect]
     Indication: ANAPLASTIC ASTROCYTOMA
     Dosage: 150 MG/M2;QD;PO  ;2000 MG/M2;QD;PO
     Route: 048
     Dates: start: 20080704, end: 20080708
  15. TEMODAL [Suspect]
     Indication: ANAPLASTIC ASTROCYTOMA
     Dosage: 150 MG/M2;QD;PO  ;2000 MG/M2;QD;PO
     Route: 048
     Dates: start: 20091009, end: 20091013
  16. TEMODAL [Suspect]
     Indication: ANAPLASTIC ASTROCYTOMA
     Dosage: 150 MG/M2;QD;PO  ;2000 MG/M2;QD;PO
     Route: 048
     Dates: start: 20080227, end: 20080302
  17. TEMODAL [Suspect]
     Indication: ANAPLASTIC ASTROCYTOMA
     Dosage: 150 MG/M2;QD;PO  ;2000 MG/M2;QD;PO
     Route: 048
     Dates: start: 20080606, end: 20080610
  18. TEMODAL [Suspect]
     Indication: ANAPLASTIC ASTROCYTOMA
     Dosage: 150 MG/M2;QD;PO  ;2000 MG/M2;QD;PO
     Route: 048
     Dates: start: 20080828, end: 20080901
  19. TEMODAL [Suspect]
     Indication: ANAPLASTIC ASTROCYTOMA
     Dosage: 150 MG/M2;QD;PO  ;2000 MG/M2;QD;PO
     Route: 048
     Dates: start: 20080926, end: 20080930
  20. TEMODAL [Suspect]
     Indication: ANAPLASTIC ASTROCYTOMA
     Dosage: 150 MG/M2;QD;PO  ;2000 MG/M2;QD;PO
     Route: 048
     Dates: start: 20081119, end: 20081123
  21. TEMODAL [Suspect]
     Indication: ANAPLASTIC ASTROCYTOMA
     Dosage: 150 MG/M2;QD;PO  ;2000 MG/M2;QD;PO
     Route: 048
     Dates: start: 20090717, end: 20090721
  22. TEMODAL [Suspect]
     Indication: ANAPLASTIC ASTROCYTOMA
     Dosage: 150 MG/M2;QD;PO  ;2000 MG/M2;QD;PO
     Route: 048
     Dates: start: 20090911, end: 20090915
  23. TEMODAL [Suspect]
     Indication: ANAPLASTIC ASTROCYTOMA
     Dosage: 150 MG/M2;QD;PO  ;2000 MG/M2;QD;PO
     Route: 048
     Dates: start: 20080509, end: 20080513
  24. TEMODAL [Suspect]
     Indication: ANAPLASTIC ASTROCYTOMA
     Dosage: 150 MG/M2;QD;PO  ;2000 MG/M2;QD;PO
     Route: 048
     Dates: start: 20081022, end: 20081026
  25. CNAVOBAN [Concomitant]

REACTIONS (8)
  - GAIT DISTURBANCE [None]
  - DECUBITUS ULCER [None]
  - GENERAL PHYSICAL HEALTH DETERIORATION [None]
  - URINARY TRACT INFECTION [None]
  - PLATELET COUNT DECREASED [None]
  - DIPLEGIA [None]
  - OSTEOMYELITIS [None]
  - METASTASIS [None]
